FAERS Safety Report 22590646 (Version 1)
Quarter: 2023Q2

REPORT INFORMATION
  Report Type: Report from Study
  Country: DE (occurrence: DE)
  Receive Date: 20230612
  Receipt Date: 20230612
  Transmission Date: 20230721
  Serious: Yes (Hospitalization, Other)
  Sender: FDA-Public Use
  Company Number: DE-SHIRE-ALL1-2013-04384

PATIENT
  Age: 15 Year
  Sex: Male

DRUGS (11)
  1. IDURSULFASE [Suspect]
     Active Substance: IDURSULFASE
     Indication: Mucopolysaccharidosis II
     Dosage: 18 MILLIGRAM, 1/WEEK
     Route: 041
     Dates: start: 20070221
  2. IDURSULFASE [Suspect]
     Active Substance: IDURSULFASE
     Dosage: 0.55 MILLIGRAM/KILOGRAM
     Route: 042
     Dates: start: 20070817
  3. IDURSULFASE [Suspect]
     Active Substance: IDURSULFASE
     Dosage: 0.52 MILLIGRAM/KILOGRAM, 1/WEEK
     Route: 042
     Dates: start: 20130307
  4. POLYETHYLENE GLYCOLS [Concomitant]
     Active Substance: POLYETHYLENE GLYCOLS
     Indication: Gastrointestinal disorder
     Dosage: 13 GRAM
     Route: 048
     Dates: start: 201011
  5. SODIUM CHLORIDE [Concomitant]
     Active Substance: SODIUM CHLORIDE
     Indication: Respiratory disorder
     Dosage: UNK
     Route: 055
     Dates: start: 20080208
  6. ALBUTEROL [Concomitant]
     Active Substance: ALBUTEROL
     Indication: Respiratory disorder
     Dosage: UNK
     Route: 055
     Dates: start: 20080208, end: 2010
  7. PANTOPRAZOLE SODIUM [Concomitant]
     Active Substance: PANTOPRAZOLE SODIUM
     Indication: Gastric disorder
     Dosage: UNK
     Route: 048
     Dates: start: 2013, end: 2013
  8. LEVETIRACETAM [Concomitant]
     Active Substance: LEVETIRACETAM
     Indication: Epilepsy
     Dosage: UNK
     Route: 048
     Dates: start: 2013, end: 20131001
  9. VALPROIC ACID [Concomitant]
     Active Substance: VALPROIC ACID
     Indication: Nervous system disorder
     Dosage: UNK
     Route: 048
     Dates: start: 20130518
  10. BUTYLSCOPOLAMINIUMBROMID [Concomitant]
     Indication: Gastrointestinal disorder
     Dosage: UNK
     Route: 054
     Dates: start: 20130625, end: 20130625
  11. CEFUROXIME [Concomitant]
     Active Substance: CEFUROXIME
     Indication: Infection
     Dosage: UNK
     Route: 042
     Dates: start: 20130919, end: 20131001

REACTIONS (1)
  - Generalised tonic-clonic seizure [Recovered/Resolved with Sequelae]

NARRATIVE: CASE EVENT DATE: 20130518
